FAERS Safety Report 15430426 (Version 2)
Quarter: 2018Q4

REPORT INFORMATION
  Report Type: Report from Study
  Country: US (occurrence: US)
  Receive Date: 20180926
  Receipt Date: 20181212
  Transmission Date: 20190204
  Serious: Yes (Hospitalization, Other)
  Sender: FDA-Public Use
  Company Number: US-009507513-1809USA009992

PATIENT
  Sex: Male

DRUGS (4)
  1. PREDNISONE. [Concomitant]
     Active Substance: PREDNISONE
  2. XARELTO [Concomitant]
     Active Substance: RIVAROXABAN
  3. ALECENSA [Suspect]
     Active Substance: ALECTINIB HYDROCHLORIDE
     Dosage: UNK
     Dates: start: 2018
  4. KEYTRUDA [Suspect]
     Active Substance: PEMBROLIZUMAB
     Indication: NON-SMALL CELL LUNG CANCER
     Dosage: UNK
     Dates: start: 201806, end: 2018

REACTIONS (5)
  - Renal disorder [Unknown]
  - Pulmonary embolism [Unknown]
  - Blood creatinine increased [Unknown]
  - Pneumonia [Unknown]
  - Anaplastic lymphoma kinase gene mutation [Unknown]

NARRATIVE: CASE EVENT DATE: 2018
